FAERS Safety Report 23661453 (Version 1)
Quarter: 2024Q1

REPORT INFORMATION
  Report Type: Spontaneous
  Country: US (occurrence: US)
  Receive Date: 20240322
  Receipt Date: 20240322
  Transmission Date: 20240409
  Serious: No
  Sender: FDA-Public Use
  Company Number: US-GLAXOSMITHKLINE-US2024AMR034512

PATIENT
  Sex: Female

DRUGS (2)
  1. ZEJULA [Suspect]
     Active Substance: NIRAPARIB
     Indication: Ovarian cancer
     Dosage: 300 MG, QD
     Route: 048
     Dates: start: 20231130
  2. HUMAN RED BLOOD CELL [Concomitant]
     Active Substance: HUMAN RED BLOOD CELL
     Indication: Product used for unknown indication
     Dosage: UNK

REACTIONS (8)
  - Dizziness [Unknown]
  - Heart rate increased [Unknown]
  - Insomnia [Unknown]
  - Loss of personal independence in daily activities [Unknown]
  - Vomiting [Unknown]
  - Fatigue [Unknown]
  - Decreased appetite [Unknown]
  - Epistaxis [Unknown]
